FAERS Safety Report 14845050 (Version 1)
Quarter: 2018Q2

REPORT INFORMATION
  Report Type: Spontaneous
  Country: US (occurrence: US)
  Receive Date: 20180504
  Receipt Date: 20180504
  Transmission Date: 20180711
  Serious: No
  Sender: FDA-Public Use
  Company Number: US-CIPLA LTD.-2017US07421

PATIENT

DRUGS (7)
  1. IBUPROFEN. [Concomitant]
     Active Substance: IBUPROFEN
     Dosage: UNK
     Route: 065
  2. TOPIRAMATE. [Suspect]
     Active Substance: TOPIRAMATE
     Indication: EPILEPSY
     Dosage: 25 MG, MORNING AND NIGHT (WEEK 1)
     Route: 065
  3. TOPIRAMATE. [Interacting]
     Active Substance: TOPIRAMATE
     Dosage: 25 MG, TID, MORNING AND NIGHT (WEEK 3)
     Route: 065
  4. PROBIOTIC                          /06395501/ [Concomitant]
     Active Substance: BIFIDOBACTERIUM ANIMALIS LACTIS
     Dosage: UNK
     Route: 065
  5. SODIUM VALPROATE [Interacting]
     Active Substance: VALPROATE SODIUM
     Indication: EPILEPSY
     Dosage: UNK
     Route: 065
  6. TOPIRAMATE. [Interacting]
     Active Substance: TOPIRAMATE
     Dosage: 25 MG, QID, MORNING AND NIGHT (WEEK 4)
     Route: 065
  7. TOPIRAMATE. [Interacting]
     Active Substance: TOPIRAMATE
     Dosage: 25 MG, BID, MORNING AND NIGHT (WEEK 2)
     Route: 065

REACTIONS (2)
  - Drug interaction [Unknown]
  - Urine analysis abnormal [Unknown]
